FAERS Safety Report 5964572-8 (Version None)
Quarter: 2008Q4

REPORT INFORMATION
  Report Type: 
  Country: None (occurrence: None)
  Receive Date: 20081122
  Receipt Date: 20081122
  Transmission Date: 20090506
  Serious: Yes (Life-Threatening)
  Sender: FDA-Public Use
  Company Number: None

PATIENT
  Sex: Female
  Weight: 74.8435 kg

DRUGS (1)
  1. FENTANYL-100 [Suspect]
     Indication: BONE PAIN
     Dosage: 1 PATCH EVERY 3 DAYS
     Dates: start: 20050617

REACTIONS (3)
  - HEART RATE INCREASED [None]
  - TENSION HEADACHE [None]
  - TINNITUS [None]
